FAERS Safety Report 5761867-8 (Version None)
Quarter: 2008Q2

REPORT INFORMATION
  Report Type: 
  Country: None (occurrence: None)
  Receive Date: 20080606
  Receipt Date: 20080530
  Transmission Date: 20081010
  Serious: Yes (Hospitalization)
  Sender: FDA-Public Use
  Company Number: US-PFIZER INC-2008046500

PATIENT
  Sex: Male
  Weight: 104.54 kg

DRUGS (8)
  1. XALATAN [Suspect]
  2. ADVAIR DISKUS 100/50 [Concomitant]
  3. TESTOSTERONE [Concomitant]
     Route: 061
  4. ALLOPURINOL [Concomitant]
  5. LOPID [Concomitant]
  6. HYDROCHLOROTHIAZIDE [Concomitant]
  7. LIPITOR [Concomitant]
  8. GLYBURIDE [Concomitant]

REACTIONS (3)
  - DRY SKIN [None]
  - INTESTINAL OPERATION [None]
  - SKIN ULCER [None]
